FAERS Safety Report 16502641 (Version 2)
Quarter: 2020Q2

REPORT INFORMATION
  Report Type: Spontaneous
  Country: DK (occurrence: DK)
  Receive Date: 20190701
  Receipt Date: 20200408
  Transmission Date: 20200713
  Serious: Yes (Hospitalization)
  Sender: FDA-Public Use
  Company Number: DK-PFIZER INC-2019273031

PATIENT
  Age: 76 Year
  Sex: Female
  Weight: 56 kg

DRUGS (4)
  1. ZOLEDRONIC ACID [Suspect]
     Active Substance: ZOLEDRONIC ACID
     Indication: METASTASES TO BONE
     Dosage: 4 MG, UNK (STRENGTH: 4 MG/100 ML)
     Route: 042
     Dates: start: 20190405, end: 20190405
  2. TARCEVA [Concomitant]
     Active Substance: ERLOTINIB HYDROCHLORIDE
     Indication: LUNG NEOPLASM MALIGNANT
     Dosage: 150 MG, 1X/DAY
     Route: 048
     Dates: start: 20190404
  3. LATANOPROST. [Concomitant]
     Active Substance: LATANOPROST
     Indication: GLAUCOMA
     Dosage: 1 DF, 1X/DAY (STRENGTH: 50 UG/ML)
     Route: 047
     Dates: start: 20150805
  4. BUDESONIDE. [Concomitant]
     Active Substance: BUDESONIDE
     Indication: SINUSITIS
     Dosage: 4 DF, 1X/DAY (STRENGTH: 64 UG/DOSE)
     Route: 045
     Dates: start: 20160105

REACTIONS (5)
  - Exophthalmos [Recovered/Resolved]
  - Vision blurred [Recovered/Resolved]
  - Eye swelling [Recovered/Resolved]
  - Parophthalmia [Recovered/Resolved]
  - Ocular hyperaemia [Recovered/Resolved]

NARRATIVE: CASE EVENT DATE: 20190406
